FAERS Safety Report 11997542 (Version 1)
Quarter: 2016Q1

REPORT INFORMATION
  Report Type: Spontaneous
  Country: US (occurrence: None)
  Receive Date: 20160202
  Receipt Date: 20160202
  Transmission Date: 20160526
  Serious: Yes (Hospitalization)
  Sender: FDA-Public Use
  Company Number: None

PATIENT
  Age: 60 Year
  Sex: Female

DRUGS (22)
  1. SOMAVERT [Suspect]
     Active Substance: PEGVISOMANT
     Indication: ACROMEGALY
     Route: 058
     Dates: start: 20150123
  2. PROAIR HFA [Concomitant]
     Active Substance: ALBUTEROL SULFATE
  3. MONTELUKAST [Concomitant]
     Active Substance: MONTELUKAST SODIUM
  4. LYRICA [Concomitant]
     Active Substance: PREGABALIN
  5. LISINOPRIL. [Concomitant]
     Active Substance: LISINOPRIL
  6. FLUCONAZOLE. [Concomitant]
     Active Substance: FLUCONAZOLE
  7. GABAPENTIN. [Concomitant]
     Active Substance: GABAPENTIN
  8. CITALOPRAM [Concomitant]
     Active Substance: CITALOPRAM HYDROBROMIDE
  9. WARFARIN [Concomitant]
     Active Substance: WARFARIN
  10. BUPROPN HCL [Concomitant]
     Active Substance: BUPROPION HYDROCHLORIDE
  11. ASPIRIN. [Concomitant]
     Active Substance: ASPIRIN
  12. ALBUTEROL NEB [Concomitant]
  13. SOMATULINE AUTOGEL [Concomitant]
     Active Substance: LANREOTIDE ACETATE
  14. NEURONTIN [Concomitant]
     Active Substance: GABAPENTIN
  15. LEVOFLOXACIN. [Concomitant]
     Active Substance: LEVOFLOXACIN
  16. OMEPRAZOLE. [Concomitant]
     Active Substance: OMEPRAZOLE
  17. METOPROLOL. [Concomitant]
     Active Substance: METOPROLOL
  18. HYDROCO/APAP [Concomitant]
     Active Substance: ACETAMINOPHEN\HYDROCODONE
  19. PRAVASTATIN [Concomitant]
     Active Substance: PRAVASTATIN\PRAVASTATIN SODIUM
  20. L-THYROXINE [Concomitant]
     Active Substance: LEVOTHYROXINE
  21. DOXAZOSIN [Concomitant]
     Active Substance: DOXAZOSIN\DOXAZOSIN MESYLATE
  22. VICTOZA [Concomitant]
     Active Substance: LIRAGLUTIDE

REACTIONS (1)
  - Pulmonary thrombosis [None]

NARRATIVE: CASE EVENT DATE: 20160102
